FAERS Safety Report 5183380-1 (Version None)
Quarter: 2006Q4

REPORT INFORMATION
  Report Type: 
  Country: None (occurrence: None)
  Receive Date: 20061220
  Receipt Date: 20060110
  Transmission Date: 20070319
  Serious: No
  Sender: FDA-Public Use
  Company Number: US-GLAXOSMITHKLINE-A0588549A

PATIENT
  Age: 31 Year
  Sex: Male

DRUGS (4)
  1. NICODERM CQ [Suspect]
  2. NICODERM CQ [Suspect]
     Dates: start: 20051229
  3. NICORETTE [Suspect]
  4. COMMIT [Suspect]

REACTIONS (2)
  - APPLICATION SITE PAIN [None]
  - THROAT IRRITATION [None]
